FAERS Safety Report 6749992-6 (Version None)
Quarter: 2010Q2

REPORT INFORMATION
  Report Type: 
  Country: None (occurrence: None)
  Receive Date: 20100601
  Receipt Date: 20100526
  Transmission Date: 20101027
  Serious: Yes (Hospitalization)
  Sender: FDA-Public Use
  Company Number: US-B.I. PHARMACEUTICALS,INC./RIDGEFIELD-2010-BP-05896BP

PATIENT
  Sex: Female

DRUGS (6)
  1. SPIRIVA [Suspect]
  2. FLUTICASONE PROPIONATE +SALMETEROL XINAFOATE [Suspect]
     Indication: CHRONIC OBSTRUCTIVE PULMONARY DISEASE
     Dosage: 2 PUF
     Route: 055
     Dates: start: 20020101, end: 20100315
  3. FLUTICASONE PROPIONATE +SALMETEROL XINAFOATE [Suspect]
     Indication: EMPHYSEMA
  4. DUONEB [Suspect]
  5. PREDNISONE [Concomitant]
  6. BLOOD PRESSURE MEDICATION [Concomitant]

REACTIONS (10)
  - CIRCUMORAL OEDEMA [None]
  - DRY MOUTH [None]
  - FEELING ABNORMAL [None]
  - HYPOAESTHESIA ORAL [None]
  - LIP SWELLING [None]
  - ORAL DISCOMFORT [None]
  - OROPHARYNGEAL SWELLING [None]
  - SENSORY DISTURBANCE [None]
  - SWELLING FACE [None]
  - TREMOR [None]
